FAERS Safety Report 6146564-1 (Version None)
Quarter: 2009Q2

REPORT INFORMATION
  Report Type: 
  Country: None (occurrence: None)
  Receive Date: 20090407
  Receipt Date: 20090324
  Transmission Date: 20091009
  Serious: Yes (Other)
  Sender: FDA-Public Use
  Company Number: US-MERCK-0904USA00288

PATIENT
  Sex: Female

DRUGS (12)
  1. ZETIA [Suspect]
     Indication: HYPERLIPIDAEMIA
     Route: 048
  2. PAXIL [Concomitant]
     Indication: DEPRESSION
     Route: 065
  3. BUSPAR [Concomitant]
     Route: 065
  4. TRAZODONE HYDROCHLORIDE [Concomitant]
     Indication: DEPRESSION
     Route: 065
  5. PERCOCET [Concomitant]
     Indication: BACK PAIN
     Route: 065
  6. PRILOSEC [Concomitant]
     Indication: GASTROOESOPHAGEAL REFLUX DISEASE
     Route: 065
  7. NIASPAN [Concomitant]
     Indication: HYPERLIPIDAEMIA
     Route: 065
  8. LIPITOR [Concomitant]
     Indication: HYPERLIPIDAEMIA
     Route: 065
  9. ASPIRIN [Concomitant]
     Route: 065
  10. ZESTRIL [Concomitant]
     Route: 065
  11. VIOXX [Concomitant]
     Route: 048
  12. PLAVIX [Concomitant]
     Route: 065

REACTIONS (1)
  - RENAL FAILURE ACUTE [None]
